FAERS Safety Report 21438758 (Version 2)
Quarter: 2023Q4

REPORT INFORMATION
  Report Type: Spontaneous
  Country: US (occurrence: US)
  Receive Date: 20221011
  Receipt Date: 20231012
  Transmission Date: 20240110
  Serious: No
  Sender: FDA-Public Use
  Company Number: US-Hikma Pharmaceuticals USA Inc.-US-H14001-22-02040

PATIENT
  Sex: Female

DRUGS (1)
  1. DIHYDROERGOTAMINE MESYLATE [Suspect]
     Active Substance: DIHYDROERGOTAMINE MESYLATE
     Indication: Migraine
     Dosage: 2 CC (2 AMPULES^ WORTH OF FLUID) AT THE ONSET OF A MIGRAINE WITH A 3CC SYRINGE, IN THIGH
     Route: 030
     Dates: start: 2008

REACTIONS (2)
  - Wound [Unknown]
  - Product use issue [Unknown]
